FAERS Safety Report 6709489-6 (Version None)
Quarter: 2010Q2

REPORT INFORMATION
  Report Type: 
  Country: None (occurrence: None)
  Receive Date: 20100504
  Receipt Date: 20100428
  Transmission Date: 20101027
  Serious: Yes (Hospitalization, Other)
  Sender: FDA-Public Use
  Company Number: NL-BAYER-200713587GDS

PATIENT
  Age: 57 Year
  Sex: Male

DRUGS (4)
  1. NEXAVAR [Suspect]
     Indication: METASTATIC RENAL CELL CARCINOMA
     Dosage: TOTAL DAILY DOSE: 200 MG
     Route: 048
  2. NEXAVAR [Suspect]
     Dosage: TOTAL DAILY DOSE: 400 MG
     Route: 048
     Dates: start: 20090101
  3. NEXAVAR [Suspect]
     Dosage: 1 TABLET TWICE A DAY ALTERNATING EVERY OTHER DAY 1TABLET ONCE A DAY AND 2 TABLET TWICE A DAY
     Route: 048
     Dates: start: 20081215, end: 20090101
  4. NEXAVAR [Suspect]
     Dosage: TOTAL DAILY DOSE: 400 MG
     Route: 048
     Dates: start: 20070625, end: 20081215

REACTIONS (9)
  - ALOPECIA [None]
  - BLISTER [None]
  - BLOOD GLUCOSE INCREASED [None]
  - CEREBRAL INFARCTION [None]
  - DIABETES MELLITUS [None]
  - GASTROINTESTINAL HAEMORRHAGE [None]
  - HYPERAESTHESIA [None]
  - NECK PAIN [None]
  - PAIN IN EXTREMITY [None]
